FAERS Safety Report 4469622-6 (Version None)
Quarter: 2004Q4

REPORT INFORMATION
  Report Type: 
  Country: None (occurrence: None)
  Receive Date: 20041008
  Receipt Date: 20040917
  Transmission Date: 20050328
  Serious: Yes (Other)
  Sender: FDA-Public Use
  Company Number: US-ABBOTT-04P-163-0273747-00

PATIENT
  Age: 55 Year
  Sex: Female

DRUGS (7)
  1. FENOFIBRATE 54MG [Suspect]
     Indication: HYPERTRIGLYCERIDAEMIA
     Route: 048
     Dates: start: 20020701, end: 20021001
  2. CYCLOSPORINE [Concomitant]
     Indication: IMMUNOSUPPRESSION
     Dates: start: 19931001
  3. AZATHIOPRINE [Concomitant]
     Indication: IMMUNOSUPPRESSION
     Dates: start: 19931001
  4. METOPROLOL [Concomitant]
     Indication: DRUG USE FOR UNKNOWN INDICATION
  5. CLONIDINE HCL [Concomitant]
     Indication: DRUG USE FOR UNKNOWN INDICATION
     Route: 062
  6. FLUVASTATIN [Concomitant]
     Indication: DYSLIPIDAEMIA
     Dates: start: 20021001
  7. AMLODIPINE/BENAZEPRIL [Concomitant]
     Indication: DRUG USE FOR UNKNOWN INDICATION
     Dosage: 5 MG/ 10 MG

REACTIONS (3)
  - BLOOD CREATININE INCREASED [None]
  - COMPLICATIONS OF TRANSPLANTED KIDNEY [None]
  - DRUG TOXICITY [None]
